FAERS Safety Report 14574301 (Version 2)
Quarter: 2018Q3

REPORT INFORMATION
  Report Type: Spontaneous
  Country: US (occurrence: US)
  Receive Date: 20180226
  Receipt Date: 20180821
  Transmission Date: 20181010
  Serious: Yes (Other)
  Sender: FDA-Public Use
  Company Number: US-BAUSCH-BL-2018-005027

PATIENT
  Age: 45 Year
  Sex: Female
  Weight: 72.64 kg

DRUGS (3)
  1. MURO 128 [Suspect]
     Active Substance: SODIUM CHLORIDE
     Dosage: NEW TUBE
     Route: 047
     Dates: start: 20180219
  2. MURO 128 [Suspect]
     Active Substance: SODIUM CHLORIDE
     Route: 047
     Dates: start: 2013
  3. MURO 128 [Suspect]
     Active Substance: SODIUM CHLORIDE
     Indication: CORNEAL EROSION
     Dosage: MANY YEARS AGO; APPLIED TO EACH EYE AT BEDTIME
     Route: 047

REACTIONS (5)
  - Product physical consistency issue [Not Recovered/Not Resolved]
  - Lacrimation increased [Not Recovered/Not Resolved]
  - Corneal abrasion [Unknown]
  - Eye swelling [Not Recovered/Not Resolved]
  - Instillation site foreign body sensation [Not Recovered/Not Resolved]

NARRATIVE: CASE EVENT DATE: 2013
